FAERS Safety Report 4827199-7 (Version None)
Quarter: 2005Q4

REPORT INFORMATION
  Report Type: 
  Country: None (occurrence: None)
  Receive Date: 20051014
  Receipt Date: 20050721
  Transmission Date: 20060501
  Serious: No
  Sender: FDA-Public Use
  Company Number: 2005SP000230

PATIENT
  Age: 80 Year
  Sex: Female
  Weight: 99.7913 kg

DRUGS (8)
  1. LUNESTA [Suspect]
     Indication: INSOMNIA
     Dosage: SEE IMAGE
     Route: 048
     Dates: start: 20050101, end: 20050101
  2. LUNESTA [Suspect]
     Indication: INSOMNIA
     Dosage: SEE IMAGE
     Route: 048
     Dates: start: 20050101
  3. AMIODARONE [Concomitant]
  4. ATORVASTATIN CALCIUM [Concomitant]
  5. VERAPAMIL [Concomitant]
  6. ATENOLOL [Concomitant]
  7. POTASSIUM [Concomitant]
  8. HYZAAR [Concomitant]

REACTIONS (2)
  - DRUG INEFFECTIVE [None]
  - INITIAL INSOMNIA [None]
